FAERS Safety Report 4819702-8 (Version None)
Quarter: 2005Q4

REPORT INFORMATION
  Report Type: 
  Country: None (occurrence: None)
  Receive Date: 20051102
  Receipt Date: 20051102
  Transmission Date: 20060501
  Serious: Yes (Hospitalization)
  Sender: FDA-Public Use
  Company Number: None

PATIENT
  Age: 93 Year
  Sex: Male
  Weight: 52.3 kg

DRUGS (1)
  1. PERCOCET [Suspect]
     Indication: PAIN
     Dates: start: 20050801

REACTIONS (2)
  - LUNG INFILTRATION [None]
  - MENTAL STATUS CHANGES [None]
